FAERS Safety Report 25957828 (Version 1)
Quarter: 2025Q4

REPORT INFORMATION
  Report Type: Spontaneous
  Country: US (occurrence: US)
  Receive Date: 20251024
  Receipt Date: 20251024
  Transmission Date: 20260117
  Serious: No
  Sender: GALPHARM INTERNATIONAL
  Company Number: US-PERRIGO-23US005372

PATIENT

DRUGS (3)
  1. NICOTINE POLACRILEX [Suspect]
     Active Substance: NICOTINE
     Indication: Product used for unknown indication
     Dosage: HALF LOZENGE, UNKNOWN
     Route: 002
     Dates: start: 2016, end: 2023
  2. NICOTINE POLACRILEX [Suspect]
     Active Substance: NICOTINE
     Dosage: HALF LOZENGE, UNKNOWN
     Route: 002
     Dates: start: 2023, end: 20230424
  3. NICOTINE POLACRILEX [Suspect]
     Active Substance: NICOTINE
     Dosage: HALF LOZENGE, UNKNOWN
     Route: 002
     Dates: start: 20230425

REACTIONS (2)
  - Nausea [Unknown]
  - Wrong technique in product usage process [Unknown]

NARRATIVE: CASE EVENT DATE: 20160101
